FAERS Safety Report 9571388 (Version 5)
Quarter: 2013Q4

REPORT INFORMATION
  Report Type: Report from Study
  Country: US (occurrence: US)
  Receive Date: 20131001
  Receipt Date: 20131115
  Transmission Date: 20140711
  Serious: Yes (Disabling)
  Sender: FDA-Public Use
  Company Number: US-SANOFI-AVENTIS-2013SA087569

PATIENT
  Age: 62 Year
  Sex: Female
  Weight: 63.5 kg

DRUGS (16)
  1. AUBAGIO [Suspect]
     Indication: MULTIPLE SCLEROSIS
     Route: 048
     Dates: start: 20130724, end: 20130902
  2. ALL OTHER THERAPEUTIC PRODUCTS [Suspect]
     Route: 065
  3. PROZAC [Concomitant]
     Indication: DEPRESSION
     Route: 065
     Dates: start: 2008
  4. PROZAC [Concomitant]
     Indication: ANXIETY
     Route: 065
     Dates: start: 2008
  5. TRAZODONE [Concomitant]
     Indication: INSOMNIA
     Dosage: START DATE: 2009 OR 2008
     Route: 065
  6. NEURONTIN [Concomitant]
     Indication: NEURALGIA
     Route: 065
     Dates: start: 201210
  7. ALEVE [Concomitant]
     Indication: ANTIINFLAMMATORY THERAPY
     Route: 065
     Dates: start: 1980
  8. ALL OTHER THERAPEUTIC PRODUCTS [Concomitant]
     Indication: PAIN
     Route: 065
     Dates: start: 2009
  9. ASPIRIN [Concomitant]
     Indication: CARDIOVASCULAR DISORDER
     Dosage: STRENGTH: 81 MG
  10. CALCIUM WITH VITAMIN D [Concomitant]
     Indication: PROPHYLAXIS
     Dates: start: 1981
  11. ALPHA LIPOIC ACID [Concomitant]
     Dates: start: 200904
  12. VITAMIN C [Concomitant]
     Indication: PROPHYLAXIS
     Dates: start: 2009
  13. L-LYSINE [Concomitant]
     Indication: PROPHYLAXIS
     Dates: start: 1995
  14. VITAMIN D3 [Concomitant]
     Indication: MULTIPLE SCLEROSIS
     Dosage: 2000 IU AM 1000 IN PM
     Dates: start: 2009
  15. VITAMIN A [Concomitant]
     Indication: EYE DISORDER
     Dosage: 5000, 400
     Dates: start: 1981
  16. METAMUCIL [Concomitant]
     Indication: GASTROINTESTINAL DISORDER
     Dates: start: 2000

REACTIONS (14)
  - Pain [Not Recovered/Not Resolved]
  - Wheelchair user [Not Recovered/Not Resolved]
  - Gait disturbance [Not Recovered/Not Resolved]
  - Feeling abnormal [Not Recovered/Not Resolved]
  - Rash [Not Recovered/Not Resolved]
  - Pruritus [Not Recovered/Not Resolved]
  - Pulse abnormal [Not Recovered/Not Resolved]
  - Adverse drug reaction [Not Recovered/Not Resolved]
  - Arthralgia [Not Recovered/Not Resolved]
  - Memory impairment [Unknown]
  - Anxiety [Not Recovered/Not Resolved]
  - Vomiting [Not Recovered/Not Resolved]
  - Diarrhoea [Not Recovered/Not Resolved]
  - Neuropathy peripheral [Not Recovered/Not Resolved]
